FAERS Safety Report 9991903 (Version 2)
Quarter: 2014Q2

REPORT INFORMATION
  Report Type: Spontaneous
  Country: US (occurrence: US)
  Receive Date: 20140310
  Receipt Date: 20140421
  Transmission Date: 20141212
  Serious: Yes (Hospitalization)
  Sender: FDA-Public Use
  Company Number: US-BAYER-2014-033557

PATIENT
  Age: 30 Year
  Sex: Female

DRUGS (3)
  1. YAZ [Suspect]
  2. MOMETASONE FUROATE [Concomitant]
     Dosage: 0.14 %, UNK
     Route: 061
     Dates: start: 20080506
  3. NASONEX [Concomitant]
     Dosage: 50 ?G, INHALED
     Dates: start: 20080506

REACTIONS (1)
  - Pulmonary embolism [None]
